FAERS Safety Report 15854385 (Version 1)
Quarter: 2019Q1

REPORT INFORMATION
  Report Type: Spontaneous
  Country: US (occurrence: US)
  Receive Date: 20190122
  Receipt Date: 20190122
  Transmission Date: 20190417
  Serious: Yes (Hospitalization)
  Sender: FDA-Public Use
  Company Number: None

PATIENT
  Age: 53 Year
  Sex: Female
  Weight: 68.67 kg

DRUGS (7)
  1. DECADRON [Concomitant]
     Active Substance: DEXAMETHASONE
     Dates: start: 20181130
  2. SUSTOL [Suspect]
     Active Substance: GRANISETRON
     Indication: NAUSEA
     Dosage: OTHER FREQUENCY:EVERY 21 DAYS;?
     Route: 058
     Dates: start: 20181130, end: 20190118
  3. OXALIPLATIN. [Concomitant]
     Active Substance: OXALIPLATIN
     Dates: start: 20181130
  4. BENADRYL [Concomitant]
     Active Substance: DIPHENHYDRAMINE HYDROCHLORIDE
     Dates: start: 20181130
  5. HERCEPTIN [Concomitant]
     Active Substance: TRASTUZUMAB
     Dates: start: 20181130
  6. XELODA [Concomitant]
     Active Substance: CAPECITABINE
     Dates: start: 20181130
  7. TYLENOL [Concomitant]
     Active Substance: ACETAMINOPHEN
     Dates: start: 20181130

REACTIONS (4)
  - Gait disturbance [None]
  - Muscle spasms [None]
  - Dizziness [None]
  - Dysarthria [None]

NARRATIVE: CASE EVENT DATE: 20190118
